FAERS Safety Report 7443565-8 (Version None)
Quarter: 2011Q2

REPORT INFORMATION
  Report Type: 
  Country: None (occurrence: None)
  Receive Date: 20110428
  Receipt Date: 20110427
  Transmission Date: 20111010
  Serious: Yes (Death, Life-Threatening, Hospitalization)
  Sender: FDA-Public Use
  Company Number: GB-PFIZER INC-2011037469

PATIENT
  Age: 85 Year
  Sex: Female
  Weight: 76.9 kg

DRUGS (6)
  1. ACETAMINOPHEN WITH PROPOXYPHENE HCL TAB [Concomitant]
     Indication: NEURALGIA
     Dosage: 2 DF, AS NEEDED
     Dates: start: 19990701
  2. ACETAMINOPHEN WITH PROPOXYPHENE HCL TAB [Concomitant]
     Indication: NEURITIS
  3. THYROXIN [Concomitant]
     Indication: HYPOTHYROIDISM
     Dosage: 50 UG, DAILY
     Dates: start: 19940701
  4. PROPRANOLOL [Concomitant]
     Indication: ESSENTIAL HYPERTENSION
     Dosage: 40 MG, 2X/DAY
     Dates: start: 19940701
  5. HYDROCORTISONE [Concomitant]
     Indication: BLOOD CORTICOTROPHIN ABNORMAL
     Dosage: 15 MG, DAILY
     Dates: start: 19940701
  6. SOMATROPIN [Suspect]
     Indication: HYPOPITUITARISM
     Dosage: 0.3MG/DAY, 7 INJECTIONS/WEEK
     Route: 058
     Dates: start: 19990708

REACTIONS (2)
  - CEREBROVASCULAR ACCIDENT [None]
  - PNEUMONIA [None]
